FAERS Safety Report 19738458 (Version 1)
Quarter: 2021Q3

REPORT INFORMATION
  Report Type: Spontaneous
  Country: US (occurrence: US)
  Receive Date: 20210824
  Receipt Date: 20210824
  Transmission Date: 20211014
  Serious: No
  Sender: FDA-Public Use
  Company Number: US-CIPLA LTD.-2021US04559

PATIENT

DRUGS (7)
  1. COD LIVER OIL [COD?LIVER OIL] [Concomitant]
     Indication: SUPPLEMENTATION THERAPY
     Dosage: UNK, ONE TABLE SPOON DAILY
     Route: 065
  2. SIMVASTATIN. [Concomitant]
     Active Substance: SIMVASTATIN
     Indication: BLOOD CHOLESTEROL ABNORMAL
     Dosage: 40 MILLIGRAM, QD, ONE TABLET DAILY, 5 YEARS AGO
     Route: 065
  3. MEMANTINE. [Concomitant]
     Active Substance: MEMANTINE
     Indication: DEMENTIA ALZHEIMER^S TYPE
     Dosage: 10 MILLIGRAM, BID, TWO TIMES DAILY, 5 YEARS AGO
     Route: 065
  4. VITAMIN E [Concomitant]
     Active Substance: .ALPHA.-TOCOPHEROL
     Indication: SUPPLEMENTATION THERAPY
     Dosage: 1000 MILLIGRAM, QD
     Route: 065
  5. TRAZODONE [Concomitant]
     Active Substance: TRAZODONE HYDROCHLORIDE
     Indication: INSOMNIA
     Dosage: 50 MILLIGRAM, HALF TABLET DAILY, 5 YEARS AGO
     Route: 065
  6. ALENDRONATE [Suspect]
     Active Substance: ALENDRONATE SODIUM
     Indication: OSTEOPOROSIS
     Dosage: UNK
     Route: 065
     Dates: start: 2017
  7. RIVASTIGMINE. [Concomitant]
     Active Substance: RIVASTIGMINE
     Indication: DEMENTIA ALZHEIMER^S TYPE
     Dosage: 4.6 MILLIGRAM, QD, 3 MONTHS AGO
     Route: 065

REACTIONS (1)
  - Wrong technique in product usage process [Not Recovered/Not Resolved]

NARRATIVE: CASE EVENT DATE: 2017
